FAERS Safety Report 8208473 (Version 5)
Quarter: 2012Q4

REPORT INFORMATION
  Report Type: 
  Country: BE (occurrence: BE)
  Receive Date: 20111028
  Receipt Date: 20121024
  Transmission Date: 20130627
  Serious: Yes (Other)
  Sender: FDA-Public Use
  Company Number: PHHY2011BE94106

PATIENT
  Age: 39 Year
  Sex: Female

DRUGS (2)
  1. EXTAVIA [Suspect]
     Indication: MULTIPLE SCLEROSIS
     Dosage: 250 ug, QOD
     Route: 058
     Dates: start: 20110523
  2. TEMESTA [Suspect]
     Dosage: Several tablets

REACTIONS (3)
  - Toxicity to various agents [Recovering/Resolving]
  - Hypersomnia [Recovering/Resolving]
  - Depressed mood [Recovering/Resolving]
